FAERS Safety Report 9918053 (Version 2)
Quarter: 2014Q1

REPORT INFORMATION
  Report Type: Spontaneous
  Country: US (occurrence: US)
  Receive Date: 20140223
  Receipt Date: 20140310
  Transmission Date: 20141002
  Serious: No
  Sender: FDA-Public Use
  Company Number: US-009507513-1402USA008196

PATIENT
  Age: 86 Year
  Sex: Female

DRUGS (15)
  1. OXYTROL FOR WOMEN [Suspect]
     Indication: HYPERTONIC BLADDER
     Dosage: 3.9 MG, Q4D
     Route: 061
     Dates: start: 20140201, end: 20140214
  2. ASPIRIN [Concomitant]
  3. CALCIUM (UNSPECIFIED) [Concomitant]
  4. CHOLECALCIFEROL [Concomitant]
  5. CRANBERRY [Concomitant]
     Route: 048
  6. HYDROCHLOROTHIAZIDE [Concomitant]
  7. SYNTHROID [Concomitant]
  8. LOSARTAN POTASSIUM TABLETS [Concomitant]
     Route: 048
  9. VITAMINS (UNSPECIFIED) [Concomitant]
  10. OMEGA-3 MARINE TRIGLYCERIDES [Concomitant]
  11. RANITIDINE [Concomitant]
  12. ZOLOFT [Concomitant]
  13. ZANTAC [Concomitant]
  14. BETIMOL [Concomitant]
     Route: 047
  15. TRAVATAN Z [Concomitant]
     Route: 047

REACTIONS (4)
  - Application site swelling [Not Recovered/Not Resolved]
  - Application site vesicles [Not Recovered/Not Resolved]
  - Application site warmth [Not Recovered/Not Resolved]
  - Application site erythema [Not Recovered/Not Resolved]
